FAERS Safety Report 6912474-2 (Version None)
Quarter: 2010Q3

REPORT INFORMATION
  Report Type: 
  Country: None (occurrence: None)
  Receive Date: 20100806
  Receipt Date: 20080521
  Transmission Date: 20110219
  Serious: Yes (Other)
  Sender: FDA-Public Use
  Company Number: US-PFIZER INC-2008043934

PATIENT
  Age: 20 Year
  Sex: Female

DRUGS (4)
  1. MISOPROSTOL [Suspect]
     Indication: ABORTION
  2. VALIUM [Concomitant]
  3. DOXYCYCLINE [Concomitant]
  4. VICODIN [Concomitant]

REACTIONS (2)
  - ABORTION [None]
  - OFF LABEL USE [None]
